FAERS Safety Report 4601950-3 (Version None)
Quarter: 2005Q2

REPORT INFORMATION
  Report Type: 
  Country: None (occurrence: None)
  Receive Date: 20050215
  Receipt Date: 20041115
  Transmission Date: 20051028
  Serious: Yes (Hospitalization)
  Sender: FDA-Public Use
  Company Number: 386459

PATIENT
  Age: 43 Year
  Sex: Female
  Weight: 85.3 kg

DRUGS (4)
  1. PEGASYS [Suspect]
     Indication: HEPATITIS C
     Dosage: 180 MCG 1 PER WEEK SUBCUTANEOUS
     Route: 058
     Dates: start: 20041029, end: 20041109
  2. COPEGUS [Suspect]
     Indication: HEPATITIS C
     Dosage: 1000 MG DAILY ORAL
     Route: 048
     Dates: start: 20041029, end: 20041109
  3. NORVASC [Concomitant]
  4. NASONEX [Concomitant]

REACTIONS (21)
  - AFFECTIVE DISORDER [None]
  - BLOOD POTASSIUM [None]
  - BLOOD POTASSIUM DECREASED [None]
  - BLOOD PRESSURE INCREASED [None]
  - CHEST PAIN [None]
  - CONDITION AGGRAVATED [None]
  - DEPRESSION [None]
  - DIZZINESS [None]
  - EMOTIONAL DISTRESS [None]
  - EPISTAXIS [None]
  - ERYTHEMA [None]
  - FATIGUE [None]
  - HEPATIC ENZYME INCREASED [None]
  - HEPATIC PAIN [None]
  - INJECTION SITE SWELLING [None]
  - NAUSEA [None]
  - PHARYNGITIS STREPTOCOCCAL [None]
  - RED BLOOD CELL COUNT DECREASED [None]
  - VISION BLURRED [None]
  - WHITE BLOOD CELL COUNT [None]
  - WHITE BLOOD CELL COUNT DECREASED [None]
